FAERS Safety Report 12416648 (Version 5)
Quarter: 2016Q4

REPORT INFORMATION
  Report Type: Spontaneous
  Country: JP (occurrence: JP)
  Receive Date: 20160530
  Receipt Date: 20161003
  Transmission Date: 20170207
  Serious: Yes (Other)
  Sender: FDA-Public Use
  Company Number: ALJP2016JP000805

PATIENT
  Sex: Female

DRUGS (3)
  1. NEVANAC [Suspect]
     Active Substance: NEPAFENAC
     Indication: EYE INFLAMMATION
     Dosage: 1 GTT, TID
     Route: 047
  2. BERBESOLONE [Concomitant]
     Indication: EYE INFLAMMATION
     Dosage: UNK
     Route: 047
  3. VEGAMOX OPHTHALMIC SOLUTION 0.5% [Suspect]
     Active Substance: MOXIFLOXACIN HYDROCHLORIDE
     Indication: EYE INFLAMMATION
     Dosage: 1 GTT, TID
     Route: 047

REACTIONS (1)
  - Conjunctival ulcer [Recovering/Resolving]
